FAERS Safety Report 7465372-2 (Version None)
Quarter: 2011Q2

REPORT INFORMATION
  Report Type: 
  Country: None (occurrence: None)
  Receive Date: 20110509
  Receipt Date: 20110504
  Transmission Date: 20111010
  Serious: Yes (Hospitalization)
  Sender: FDA-Public Use
  Company Number: FR-PFIZER INC-2011095500

PATIENT
  Age: 79 Year
  Sex: Female

DRUGS (8)
  1. OFLOXACIN [Suspect]
     Indication: ENTEROBACTER INFECTION
     Dosage: 1 DF, 2X/DAY
     Dates: start: 20110310, end: 20110313
  2. AXEPIM [Concomitant]
     Indication: ENTEROBACTER INFECTION
     Dosage: 2 G, 3X/DAY
     Dates: start: 20110210, end: 20110313
  3. TERCIAN [Suspect]
     Route: 048
  4. LORAZEPAM [Suspect]
     Dosage: 1DF PER DAY
     Route: 048
     Dates: end: 20110313
  5. EFFEXOR XR [Suspect]
     Dosage: 1 DF PER DAY
     Route: 048
  6. SURMONTIL [Suspect]
     Dosage: 1 DF PER DAY
     Route: 048
     Dates: end: 20110317
  7. NOCTRAN [Suspect]
     Dosage: 1DF PER DAY
     Route: 048
     Dates: end: 20110317
  8. NEXIUM [Suspect]
     Dosage: 1DF PER DAY
     Route: 048

REACTIONS (2)
  - CONFUSIONAL STATE [None]
  - DYSARTHRIA [None]
